FAERS Safety Report 5452846-9 (Version None)
Quarter: 2007Q3

REPORT INFORMATION
  Report Type: 
  Country: None (occurrence: None)
  Receive Date: 20070914
  Receipt Date: 20070906
  Transmission Date: 20080115
  Serious: Yes (Hospitalization)
  Sender: FDA-Public Use
  Company Number: US-ROCHE-510578

PATIENT
  Age: 71 Year
  Sex: Female

DRUGS (3)
  1. XELODA [Suspect]
     Route: 065
     Dates: start: 20070201, end: 20070201
  2. ANTIDIARRHOEAL NOS [Suspect]
     Route: 065
     Dates: start: 20070201
  3. CONTRAST DYE [Suspect]
     Route: 065

REACTIONS (4)
  - CONVULSION [None]
  - GASTROINTESTINAL OEDEMA [None]
  - INTESTINAL OBSTRUCTION [None]
  - RENAL FAILURE [None]
